FAERS Safety Report 23643366 (Version 1)
Quarter: 2024Q1

REPORT INFORMATION
  Report Type: Spontaneous
  Country: US (occurrence: US)
  Receive Date: 20240318
  Receipt Date: 20240318
  Transmission Date: 20240409
  Serious: Yes (Other)
  Sender: FDA-Public Use
  Company Number: US-Pharmaand-2024000151

PATIENT
  Sex: Male

DRUGS (13)
  1. PEGASYS [Suspect]
     Active Substance: PEGINTERFERON ALFA-2A
     Indication: Sarcoidosis
     Dosage: 90 MCG (0.5 ML) EVERY WEEK
     Route: 058
  2. ALPRAZOLAM [Concomitant]
     Active Substance: ALPRAZOLAM
  3. AMLODIPINE B [Concomitant]
  4. BISOPROLOL F [Concomitant]
  5. CLOPIDOGREL [Concomitant]
     Active Substance: CLOPIDOGREL BISULFATE
  6. HYDROXYUREA [Concomitant]
     Active Substance: HYDROXYUREA
  7. LISINOPRIL [Concomitant]
     Active Substance: LISINOPRIL
  8. MUPIROCIN [Concomitant]
     Active Substance: MUPIROCIN
  9. OMEPRAZOLE [Concomitant]
     Active Substance: OMEPRAZOLE
  10. ONDANSETRON TBD [Concomitant]
  11. PREDNISONE [Concomitant]
     Active Substance: PREDNISONE
  12. PROMETHAZINE [Concomitant]
     Active Substance: PROMETHAZINE HYDROCHLORIDE
  13. ROSUVASTATIN [Concomitant]
     Active Substance: ROSUVASTATIN

REACTIONS (3)
  - Carotid artery occlusion [Not Recovered/Not Resolved]
  - Platelet count increased [Not Recovered/Not Resolved]
  - Off label use [Unknown]
